FAERS Safety Report 10639915 (Version 4)
Quarter: 2015Q1

REPORT INFORMATION
  Report Type: Spontaneous
  Country: US (occurrence: US)
  Receive Date: 20141209
  Receipt Date: 20150216
  Transmission Date: 20150720
  Serious: No
  Sender: FDA-Public Use
  Company Number: US-PFIZER INC-2014332322

PATIENT
  Age: 64 Year
  Sex: Female
  Weight: 58.5 kg

DRUGS (3)
  1. ELELYSO [Suspect]
     Active Substance: TALIGLUCERASE ALFA
     Dosage: UNK
  2. ELELYSO [Suspect]
     Active Substance: TALIGLUCERASE ALFA
     Indication: GAUCHER^S DISEASE
     Dosage: 3600 UNITS EVERY 2 WEEKS
     Route: 042
     Dates: start: 201410
  3. MORPHINE [Concomitant]
     Active Substance: MORPHINE
     Dosage: UNK, 4X/DAY

REACTIONS (5)
  - Infusion site pain [Unknown]
  - Feeling abnormal [Not Recovered/Not Resolved]
  - Chest discomfort [Unknown]
  - Nausea [Unknown]
  - Pruritus [Recovered/Resolved]

NARRATIVE: CASE EVENT DATE: 20141202
